FAERS Safety Report 12154596 (Version 1)
Quarter: 2016Q1

REPORT INFORMATION
  Report Type: Report from Study
  Country: CN (occurrence: CN)
  Receive Date: 20160307
  Receipt Date: 20160307
  Transmission Date: 20160526
  Serious: Yes (Hospitalization, Other)
  Sender: FDA-Public Use
  Company Number: PHHY2016CN025875

PATIENT
  Age: 18 Year
  Sex: Male
  Weight: 30 kg

DRUGS (6)
  1. FERRIPROX [Concomitant]
     Active Substance: DEFERIPRONE
     Indication: IRON OVERLOAD
     Dosage: 66.7 MG/KG, QD
     Route: 048
  2. EXJADE [Suspect]
     Active Substance: DEFERASIROX
     Dosage: 7 DF, UNK (7 TABLETS)
     Route: 048
     Dates: start: 201602
  3. DEFERIPRONE [Concomitant]
     Active Substance: DEFERIPRONE
     Indication: IRON OVERLOAD
     Dosage: 2 DF, QD
     Route: 065
     Dates: start: 201602
  4. INSULIN [Concomitant]
     Active Substance: INSULIN NOS
     Indication: DIABETES MELLITUS
     Dosage: 10 IU, TID
     Route: 065
  5. ACARBOSE. [Concomitant]
     Active Substance: ACARBOSE
     Indication: DIABETES MELLITUS
     Dosage: 25 MG, BID
     Route: 048
  6. EXJADE [Suspect]
     Active Substance: DEFERASIROX
     Indication: THALASSAEMIA
     Dosage: 29 MG/KG, QD
     Route: 048
     Dates: start: 20150514

REACTIONS (5)
  - Cardiac failure [Not Recovered/Not Resolved]
  - Angina pectoris [Unknown]
  - Cardiac discomfort [Unknown]
  - Pericardial effusion [Unknown]
  - Heart rate increased [Unknown]

NARRATIVE: CASE EVENT DATE: 201510
